FAERS Safety Report 14474725 (Version 1)
Quarter: 2018Q1

REPORT INFORMATION
  Report Type: Spontaneous
  Country: US (occurrence: US)
  Receive Date: 20180201
  Receipt Date: 20180201
  Transmission Date: 20180509
  Serious: No
  Sender: FDA-Public Use
  Company Number: US-TEVA-2018-US-846155

PATIENT
  Sex: Female

DRUGS (1)
  1. CIPROFLOXACIN. [Suspect]
     Active Substance: CIPROFLOXACIN
     Indication: PNEUMONIA
     Route: 065
     Dates: start: 20180107, end: 20180108

REACTIONS (6)
  - Bronchitis [Unknown]
  - Arthralgia [Unknown]
  - Influenza [Unknown]
  - Oropharyngeal pain [Unknown]
  - Ear infection [Unknown]
  - Pain in extremity [Unknown]
